FAERS Safety Report 20645730 (Version 1)
Quarter: 2022Q1

REPORT INFORMATION
  Report Type: Report from Study
  Country: AT (occurrence: AT)
  Receive Date: 20220328
  Receipt Date: 20220328
  Transmission Date: 20220424
  Serious: Yes (Hospitalization)
  Sender: FDA-Public Use
  Company Number: AT-ABBVIE-22K-009-4232175-00

PATIENT
  Age: 76 Year
  Sex: Female

DRUGS (2)
  1. CARBIDOPA\LEVODOPA [Suspect]
     Active Substance: CARBIDOPA\LEVODOPA
     Indication: Parkinson^s disease
     Dosage: 24HR THERAPY:MD: 5.0ML, CR DAYTIME: 4.5ML/H; CR NIGHTTIME:: 3.0ML/H; ED: 2.0 ML
     Route: 050
     Dates: start: 20200804, end: 20220303
  2. CARBIDOPA\LEVODOPA [Suspect]
     Active Substance: CARBIDOPA\LEVODOPA
     Dosage: 24H THERAPY: MD: 5.0ML, CR DAYTIME: 4.5ML/H; CR NIGHTTIME: 3.0ML/H; ED: 2.0 ML
     Route: 050
     Dates: start: 20220322

REACTIONS (6)
  - C-reactive protein increased [Unknown]
  - Stoma site erythema [Recovered/Resolved]
  - Fungal infection [Recovered/Resolved]
  - Injection site inflammation [Not Recovered/Not Resolved]
  - COVID-19 [Recovered/Resolved]
  - Stoma site pain [Recovered/Resolved]

NARRATIVE: CASE EVENT DATE: 20220110
